FAERS Safety Report 6854099-3 (Version None)
Quarter: 2010Q3

REPORT INFORMATION
  Report Type: 
  Country: None (occurrence: None)
  Receive Date: 20100717
  Receipt Date: 20080207
  Transmission Date: 20110219
  Serious: No
  Sender: FDA-Public Use
  Company Number: US-PFIZER INC-2007103453

PATIENT
  Sex: Female
  Weight: 52.3 kg

DRUGS (4)
  1. CHANTIX [Suspect]
     Indication: SMOKING CESSATION THERAPY
     Route: 048
     Dates: start: 20070924, end: 20071202
  2. VALTREX [Concomitant]
     Indication: HERPES SIMPLEX
  3. DEPO-PROVERA [Concomitant]
  4. VITAMINS [Concomitant]

REACTIONS (1)
  - HERPES SIMPLEX [None]
